FAERS Safety Report 9386611 (Version 1)
Quarter: 2013Q3

REPORT INFORMATION
  Report Type: Spontaneous
  Country: IT (occurrence: IT)
  Receive Date: 20130708
  Receipt Date: 20130708
  Transmission Date: 20140515
  Serious: Yes (Hospitalization)
  Sender: FDA-Public Use
  Company Number: PHHY2013IT070942

PATIENT
  Sex: Female

DRUGS (5)
  1. STALEVO [Suspect]
     Indication: PARKINSON^S DISEASE
     Dosage: (200+150+37.5 MG) 3 POSOLOGICAL UNIT DAILY AND (200+125+31.5 MG) 2 POSOLOGICAL UNIT DAILY
     Route: 048
     Dates: start: 20130101, end: 20130627
  2. RASILEZ [Concomitant]
     Dosage: 300 MG, UNK
  3. LUCEN [Concomitant]
     Dosage: 20 MG, UNK
  4. LYRICA [Concomitant]
     Dosage: 75 MG, UNK
  5. RATACAND [Concomitant]
     Dosage: UNK UKN, UNK

REACTIONS (2)
  - Aggression [Recovered/Resolved]
  - Psychomotor hyperactivity [Recovered/Resolved]
